FAERS Safety Report 17217529 (Version 1)
Quarter: 2019Q4

REPORT INFORMATION
  Report Type: Spontaneous
  Country: CA (occurrence: CA)
  Receive Date: 20191231
  Receipt Date: 20191231
  Transmission Date: 20200122
  Serious: Yes (Death, Other)
  Sender: FDA-Public Use
  Company Number: CA-AUROBINDO-AUR-APL-2019-107145

PATIENT
  Age: 40 Year

DRUGS (10)
  1. CLOPIDOGREL [Interacting]
     Active Substance: CLOPIDOGREL BISULFATE
     Dosage: 75 MILLIGRAM, ONCE A DAY
     Route: 065
  2. HEPARIN [Interacting]
     Active Substance: HEPARIN SODIUM
     Indication: TRANSIENT ISCHAEMIC ATTACK
     Dosage: UNK
     Route: 042
  3. RIVAROXABAN [Interacting]
     Active Substance: RIVAROXABAN
     Indication: CARDIAC VENTRICULAR THROMBOSIS
     Dosage: 15 MILLIGRAM, TWO TIMES A DAY
     Route: 065
  4. METHOTREXATE. [Concomitant]
     Active Substance: METHOTREXATE
     Indication: SYSTEMIC LUPUS ERYTHEMATOSUS
     Dosage: UNK
     Route: 065
  5. PREDNISONE. [Suspect]
     Active Substance: PREDNISONE
     Indication: SYSTEMIC LUPUS ERYTHEMATOSUS
     Dosage: UNK
     Route: 065
  6. ACETYLSALICYLIC ACID [Interacting]
     Active Substance: ASPIRIN
     Indication: CEREBRAL INFARCTION
     Dosage: UNK
     Route: 065
  7. AZATHIOPRINE. [Concomitant]
     Active Substance: AZATHIOPRINE
     Indication: SYSTEMIC LUPUS ERYTHEMATOSUS
     Dosage: UNK
     Route: 065
  8. HEPARIN [Interacting]
     Active Substance: HEPARIN SODIUM
     Indication: CARDIAC VENTRICULAR THROMBOSIS
     Dosage: UNK
     Route: 042
  9. HYDROXYCHLOROQUINE [Concomitant]
     Active Substance: HYDROXYCHLOROQUINE
     Indication: SYSTEMIC LUPUS ERYTHEMATOSUS
     Dosage: UNK
     Route: 065
  10. CLOPIDOGREL [Suspect]
     Active Substance: CLOPIDOGREL BISULFATE
     Indication: PRODUCT USED FOR UNKNOWN INDICATION
     Dosage: 300 MILLIGRAM, TOTAL
     Route: 065

REACTIONS (11)
  - Cardiac arrest [Fatal]
  - Hyporesponsive to stimuli [Fatal]
  - Blood pressure decreased [Fatal]
  - Haematuria [Fatal]
  - Respiratory rate decreased [Fatal]
  - Labelled drug-drug interaction medication error [Fatal]
  - Off label use [Fatal]
  - Product use in unapproved indication [Fatal]
  - Transient ischaemic attack [Fatal]
  - Cerebral infarction [Fatal]
  - Retroperitoneal haemorrhage [Fatal]
